FAERS Safety Report 13500750 (Version 6)
Quarter: 2018Q3

REPORT INFORMATION
  Report Type: Spontaneous
  Country: US (occurrence: US)
  Receive Date: 20170501
  Receipt Date: 20180822
  Transmission Date: 20181010
  Serious: Yes (Hospitalization)
  Sender: FDA-Public Use
  Company Number: US-ACTELION-A-NJ2017-153137

PATIENT
  Age: 69 Year
  Sex: Male

DRUGS (13)
  1. REMODULIN [Suspect]
     Active Substance: TREPROSTINIL
     Indication: PRODUCT USED FOR UNKNOWN INDICATION
     Dosage: 0.030 ML/HR, UNK
     Route: 065
  2. REMODULIN [Suspect]
     Active Substance: TREPROSTINIL
     Dosage: 0.028 ML/HR, UNK
     Route: 065
  3. NOVOLOG [Concomitant]
     Active Substance: INSULIN ASPART
  4. FUROSEMIDE. [Concomitant]
     Active Substance: FUROSEMIDE
  5. TRACLEER [Suspect]
     Active Substance: BOSENTAN
     Indication: PULMONARY ARTERIAL HYPERTENSION
     Dosage: 62.5 MG, BID
     Route: 048
     Dates: start: 20170321
  6. FINASTERIDE. [Concomitant]
     Active Substance: FINASTERIDE
  7. ALFUZOSIN [Concomitant]
     Active Substance: ALFUZOSIN
  8. HYDRALAZINE [Concomitant]
     Active Substance: HYDRALAZINE HYDROCHLORIDE
  9. ATENOLOL. [Concomitant]
     Active Substance: ATENOLOL
  10. LORAZEPAM. [Concomitant]
     Active Substance: LORAZEPAM
  11. METOLAZONE. [Concomitant]
     Active Substance: METOLAZONE
  12. ATORVASTATIN [Concomitant]
     Active Substance: ATORVASTATIN
  13. TRACLEER [Suspect]
     Active Substance: BOSENTAN
     Dosage: 125 MG, BID
     Route: 048

REACTIONS (13)
  - Condition aggravated [Unknown]
  - Nausea [Unknown]
  - Hypotension [Unknown]
  - Dehydration [Recovering/Resolving]
  - Catheter site swelling [Unknown]
  - Vomiting [Recovered/Resolved]
  - Sinus congestion [Unknown]
  - Dizziness [Unknown]
  - Oedema [Unknown]
  - Diarrhoea [Unknown]
  - Catheter site rash [Unknown]
  - Headache [Unknown]
  - Vision blurred [Unknown]

NARRATIVE: CASE EVENT DATE: 20170415
